FAERS Safety Report 9741499 (Version 1)
Quarter: 2013Q4

REPORT INFORMATION
  Report Type: Spontaneous
  Country: DE (occurrence: DE)
  Receive Date: 20131209
  Receipt Date: 20131209
  Transmission Date: 20140711
  Serious: Yes (Death, Hospitalization)
  Sender: FDA-Public Use
  Company Number: DE-MYLANLABS-2013S1026983

PATIENT
  Age: 74 Year
  Sex: Male

DRUGS (4)
  1. AMIODARONE [Suspect]
     Indication: ATRIAL TACHYCARDIA
     Dosage: 800MG/D FOR 8D; THEN 200MG/D
     Route: 048
  2. AMIODARONE [Suspect]
     Indication: ATRIAL TACHYCARDIA
     Dosage: 200MG/D FOR 6D; THEN 600MG/D
     Route: 048
  3. AMIODARONE [Suspect]
     Indication: ATRIAL TACHYCARDIA
     Dosage: 600MG FOR 2D; THEN 600MG 3 TIMES DAILY
     Route: 048
  4. AMIODARONE [Suspect]
     Indication: ATRIAL TACHYCARDIA
     Dosage: FOR 13D
     Route: 048

REACTIONS (4)
  - Pulmonary toxicity [Fatal]
  - Accidental overdose [Fatal]
  - Electrocardiogram QRS complex prolonged [Unknown]
  - Incorrect dosage administered [Fatal]
